FAERS Safety Report 14318002 (Version 2)
Quarter: 2018Q2

REPORT INFORMATION
  Report Type: Report from Study
  Country: ES (occurrence: ES)
  Receive Date: 20171222
  Receipt Date: 20180620
  Transmission Date: 20180711
  Serious: Yes (Death)
  Sender: FDA-Public Use
  Company Number: ES-PFIZER INC-2017534251

PATIENT

DRUGS (2)
  1. PACLITAXEL. [Suspect]
     Active Substance: PACLITAXEL
     Indication: CERVIX CANCER METASTATIC
     Dosage: 175 MG/M2, CYCLIC (OVER 3 H ON DAY 1 EVERY 3 WEEKS AND OVER 6-8 CYCLES)
  2. BEVACIZUMAB. [Suspect]
     Active Substance: BEVACIZUMAB
     Indication: CERVIX CANCER METASTATIC
     Dosage: 15 MG/KG, EVERY 3 WEEKS

REACTIONS (1)
  - Intestinal perforation [Fatal]
